FAERS Safety Report 4532710-X (Version None)
Quarter: 2004Q4

REPORT INFORMATION
  Report Type: 
  Country: None (occurrence: None)
  Receive Date: 20041221
  Receipt Date: 20041209
  Transmission Date: 20050328
  Serious: Yes (Disabling, Other)
  Sender: FDA-Public Use
  Company Number: US-JNJFOC-20040606041

PATIENT
  Sex: Female
  Weight: 65.77 kg

DRUGS (18)
  1. REMICADE [Suspect]
     Route: 042
  2. REMICADE [Suspect]
     Route: 042
  3. REMICADE [Suspect]
     Route: 042
  4. REMICADE [Suspect]
     Route: 042
  5. REMICADE [Suspect]
     Route: 042
  6. REMICADE [Suspect]
     Route: 042
  7. AZATHIOPRINE [Suspect]
     Indication: CROHN'S DISEASE
  8. PENTASA [Suspect]
     Route: 049
  9. MERCAPTOPURINE [Concomitant]
     Dosage: TUESDAY AND THURSDAY
     Route: 049
  10. ACTIVELLA [Concomitant]
  11. ACTIVELLA [Concomitant]
  12. ZOLOFT [Concomitant]
  13. ACETAMINOPHEN [Concomitant]
  14. ACETAMINOPHEN [Concomitant]
  15. ACETAMINOPHEN [Concomitant]
     Indication: PREMEDICATION
  16. ANTI-HISTAMINE TAB [Concomitant]
  17. ANTI-HISTAMINE TAB [Concomitant]
  18. ANTI-HISTAMINE TAB [Concomitant]
     Indication: PREMEDICATION

REACTIONS (3)
  - BLINDNESS [None]
  - OPTIC NEURITIS [None]
  - VISUAL ACUITY REDUCED [None]
